FAERS Safety Report 19704401 (Version 1)
Quarter: 2021Q3

REPORT INFORMATION
  Report Type: Spontaneous
  Country: CH (occurrence: CH)
  Receive Date: 20210816
  Receipt Date: 20210816
  Transmission Date: 20211014
  Serious: Yes (Other)
  Sender: FDA-Public Use
  Company Number: CH-UCBSA-2021038059

PATIENT
  Age: 45 Year
  Sex: Male

DRUGS (18)
  1. IMUREK [AZATHIOPRINE] [Concomitant]
     Active Substance: AZATHIOPRINE
     Indication: PRODUCT USED FOR UNKNOWN INDICATION
     Dosage: 50 MILLIGRAM, ONCE DAILY (QD)
     Route: 048
     Dates: end: 20210614
  2. PLAQUENIL [HYDROXYCHLOROQUINE PHOSPHATE] [Concomitant]
     Active Substance: HYDROXYCHLOROQUINE DIPHOSPHATE
     Indication: PRODUCT USED FOR UNKNOWN INDICATION
     Dosage: 200 MILLIGRAM, ONCE DAILY (QD)
     Route: 048
     Dates: end: 20210614
  3. PREDNISON STREULI [Concomitant]
     Active Substance: PREDNISONE
     Dosage: 12.5 MILLIGRAM, ONCE DAILY (QD)
     Route: 048
     Dates: start: 202106, end: 20210705
  4. PREDNISON STREULI [Concomitant]
     Active Substance: PREDNISONE
     Dosage: 10 MILLIGRAM, ONCE DAILY (QD)
     Dates: start: 20210706
  5. HEPARINE [HEPARIN SODIUM] [Concomitant]
     Active Substance: HEPARIN SODIUM
     Indication: PRODUCT USED FOR UNKNOWN INDICATION
     Dosage: 40000 INTERNATIONAL UNIT, ONCE DAILY (QD)
     Dates: start: 202106
  6. IMIPENEM CILASTATIN LABATEC [Suspect]
     Active Substance: CILASTATIN SODIUM\IMIPENEM
     Indication: ABDOMINAL INFECTION
     Dosage: UNK
     Route: 041
     Dates: start: 20210614, end: 20210628
  7. VENTOLIN [Concomitant]
     Active Substance: ALBUTEROL SULFATE
     Indication: PRODUCT USED FOR UNKNOWN INDICATION
     Dosage: 1 DOSAGE FORM, AS NEEDED (PRN)
     Route: 055
  8. VIMPAT [Suspect]
     Active Substance: LACOSAMIDE
     Dosage: 100 MILLIGRAM, 2X/DAY (BID)
     Route: 048
     Dates: start: 20210627
  9. INSULATARD HM [Concomitant]
     Active Substance: INSULIN HUMAN
     Indication: PRODUCT USED FOR UNKNOWN INDICATION
     Dosage: 35 INTERNATIONAL UNIT, ONCE DAILY (QD)
     Route: 058
     Dates: start: 202106
  10. PASPERTIN [METOCLOPRAMIDE HYDROCHLORIDE] [Concomitant]
     Active Substance: METOCLOPRAMIDE HYDROCHLORIDE
     Indication: PRODUCT USED FOR UNKNOWN INDICATION
     Dosage: 10 MILLIGRAM, AS NEEDED (PRN)
     Route: 048
     Dates: start: 202106
  11. VIMPAT [Suspect]
     Active Substance: LACOSAMIDE
     Indication: SEIZURE
     Dosage: 100 MG A DAY
     Route: 048
     Dates: start: 2013, end: 20210626
  12. AMLODIPIN?MEPHA [Concomitant]
     Active Substance: AMLODIPINE MESYLATE
     Indication: PRODUCT USED FOR UNKNOWN INDICATION
     Dosage: 5 MILLIGRAM, ONCE DAILY (QD)
     Route: 048
     Dates: start: 202106
  13. TRAMAL [Concomitant]
     Active Substance: TRAMADOL
     Indication: PRODUCT USED FOR UNKNOWN INDICATION
     Dosage: 50 MILLIGRAM, ONCE DAILY (QD)
     Route: 048
     Dates: start: 202106
  14. MEROPENEM LABATEC [Suspect]
     Active Substance: MEROPENEM
     Indication: ABDOMINAL INFECTION
     Dosage: 2  GRAM  A DAY
     Route: 041
     Dates: start: 20210628
  15. DIFLUCAN [Suspect]
     Active Substance: FLUCONAZOLE
     Indication: ABDOMINAL INFECTION
     Dosage: 400 MILLIGRAM A DAY
     Route: 048
     Dates: start: 20210614
  16. NEXIUM [Suspect]
     Active Substance: ESOMEPRAZOLE MAGNESIUM
     Indication: PRODUCT USED FOR UNKNOWN INDICATION
     Dosage: 40 MILLIGRAM, 2X/DAY (BID)
     Dates: start: 202106
  17. PREDNISON STREULI [Concomitant]
     Active Substance: PREDNISONE
     Indication: PRODUCT USED FOR UNKNOWN INDICATION
     Dosage: 20 MILLIGRAM, ONCE DAILY (QD)
     Route: 048
     Dates: end: 202106
  18. LANTUS [Concomitant]
     Active Substance: INSULIN GLARGINE
     Indication: PRODUCT USED FOR UNKNOWN INDICATION
     Dosage: UNK
     Route: 058

REACTIONS (3)
  - Hallucination [Not Recovered/Not Resolved]
  - Generalised tonic-clonic seizure [Recovered/Resolved]
  - Nightmare [Not Recovered/Not Resolved]

NARRATIVE: CASE EVENT DATE: 20210626
